FAERS Safety Report 23975927 (Version 2)
Quarter: 2024Q3

REPORT INFORMATION
  Report Type: Report from Study
  Country: US (occurrence: US)
  Receive Date: 20240614
  Receipt Date: 20240701
  Transmission Date: 20241016
  Serious: Yes (Hospitalization, Disabling, Other)
  Sender: UCB
  Company Number: US-UCBSA-2024022701

PATIENT
  Sex: Male
  Weight: 48 kg

DRUGS (2)
  1. ROTIGOTINE [Suspect]
     Active Substance: ROTIGOTINE
     Indication: Restless legs syndrome
     Dosage: UNK
     Route: 062
  2. ROTIGOTINE [Suspect]
     Active Substance: ROTIGOTINE
     Dosage: 8 MILLIGRAM, ONCE DAILY (QD)
     Route: 062

REACTIONS (3)
  - Leg amputation [Recovered/Resolved]
  - Peripheral arterial occlusive disease [Unknown]
  - Overdose [Unknown]

NARRATIVE: CASE EVENT DATE: 20240101
